FAERS Safety Report 6535648-1 (Version None)
Quarter: 2009Q4

REPORT INFORMATION
  Report Type: 
  Country: None (occurrence: None)
  Receive Date: 20091228
  Receipt Date: 20090126
  Transmission Date: 20100525
  Serious: Yes (Hospitalization)
  Sender: FDA-Public Use
  Company Number: US-002406

PATIENT
  Age: 48 Year
  Sex: Female

DRUGS (2)
  1. MULTIHANCE [Suspect]
     Indication: ADNEXA UTERI MASS
     Dosage: 10 ML QD, INTRAVENOUS
     Route: 042
     Dates: start: 20081111, end: 20081111
  2. MULTIHANCE [Suspect]
     Indication: NUCLEAR MAGNETIC RESONANCE IMAGING ABDOMINAL
     Dosage: 10 ML QD, INTRAVENOUS
     Route: 042
     Dates: start: 20081111, end: 20081111

REACTIONS (1)
  - ANAPHYLACTOID REACTION [None]
